FAERS Safety Report 8136081-1 (Version None)
Quarter: 2012Q1

REPORT INFORMATION
  Report Type: 
  Country: None (occurrence: None)
  Receive Date: 20120214
  Receipt Date: 20120208
  Transmission Date: 20120608
  Serious: Yes (Hospitalization, Other)
  Sender: FDA-Public Use
  Company Number: CA-ABBOTT-11P-028-0849557-00

PATIENT
  Sex: Female
  Weight: 87.1 kg

DRUGS (1)
  1. HUMIRA [Suspect]
     Indication: PSORIASIS
     Route: 058
     Dates: start: 20101004, end: 20111219

REACTIONS (13)
  - FISTULA DISCHARGE [None]
  - CYSTITIS [None]
  - GASTROINTESTINAL PAIN [None]
  - DIVERTICULITIS [None]
  - INTESTINAL OPERATION [None]
  - ASTHENIA [None]
  - DIVERTICULUM [None]
  - FEMALE GENITAL TRACT FISTULA [None]
  - IMPAIRED HEALING [None]
  - ANASTOMOTIC LEAK [None]
  - INCISION SITE INFECTION [None]
  - ILEOSTOMY CLOSURE [None]
  - POST PROCEDURAL INFECTION [None]
